FAERS Safety Report 17845833 (Version 1)
Quarter: 2020Q2

REPORT INFORMATION
  Report Type: Spontaneous
  Country: US (occurrence: US)
  Receive Date: 20200530
  Receipt Date: 20200530
  Transmission Date: 20200714
  Serious: Yes (Other)
  Sender: FDA-Public Use
  Company Number: None

PATIENT
  Age: 36 Year
  Sex: Female
  Weight: 85.5 kg

DRUGS (2)
  1. VENLAFAXINE HAL ER CAPS 75MG [Suspect]
     Active Substance: VENLAFAXINE HYDROCHLORIDE
     Indication: DEPRESSION
     Dosage: ?          QUANTITY:1 CAPSULE(S);?
     Route: 048
  2. BUPROPION XL [Concomitant]
     Active Substance: BUPROPION

REACTIONS (6)
  - Dizziness [None]
  - Influenza like illness [None]
  - Lethargy [None]
  - Hyperhidrosis [None]
  - Withdrawal syndrome [None]
  - Fatigue [None]

NARRATIVE: CASE EVENT DATE: 20200530
